FAERS Safety Report 10201191 (Version 1)
Quarter: 2014Q2

REPORT INFORMATION
  Report Type: Spontaneous
  Country: US (occurrence: US)
  Receive Date: 20140528
  Receipt Date: 20140528
  Transmission Date: 20141212
  Serious: No
  Sender: FDA-Public Use
  Company Number: US-PFIZER INC-2014142676

PATIENT
  Age: 82 Year
  Sex: Female
  Weight: 49.89 kg

DRUGS (3)
  1. NIFEDIPINE [Suspect]
     Indication: CARDIAC DISORDER
     Dosage: UNK, DAILY
     Dates: start: 2014, end: 2014
  2. NIFEDICAL XL [Suspect]
     Indication: CARDIAC DISORDER
     Dosage: UNK, DAILY
     Dates: start: 2014, end: 2014
  3. METOPROLOL [Concomitant]
     Indication: HYPERTENSION
     Dosage: UNK, 2X/DAY
     Route: 048

REACTIONS (1)
  - Malaise [Unknown]
